FAERS Safety Report 10083378 (Version 1)
Quarter: 2014Q2

REPORT INFORMATION
  Report Type: Spontaneous
  Country: US (occurrence: None)
  Receive Date: 20140415
  Receipt Date: 20140415
  Transmission Date: 20141212
  Serious: Yes (Disabling)
  Sender: FDA-Public Use
  Company Number: None

PATIENT
  Age: 59 Year
  Sex: Female
  Weight: 99.79 kg

DRUGS (1)
  1. ACCUTANE 1 MG/KG ROCHE [Suspect]
     Indication: ACNE CYSTIC
     Route: 048

REACTIONS (4)
  - Arthralgia [None]
  - Fatigue [None]
  - Arthritis [None]
  - Discomfort [None]
